FAERS Safety Report 6398256-1 (Version None)
Quarter: 2009Q4

REPORT INFORMATION
  Report Type: 
  Country: None (occurrence: None)
  Receive Date: 20091013
  Receipt Date: 20091001
  Transmission Date: 20100525
  Serious: Yes (Other)
  Sender: FDA-Public Use
  Company Number: JP-PFIZER INC-2009269398

PATIENT
  Age: 90 Year

DRUGS (9)
  1. SELARA [Suspect]
     Indication: CARDIAC FAILURE
     Dosage: 25 MG, DAILY
     Route: 048
  2. SELARA [Suspect]
     Indication: HYPERTENSION
  3. LANIRAPID [Suspect]
     Route: 048
  4. TAKEPRON [Concomitant]
     Dosage: UNK
     Route: 048
  5. LASIX [Concomitant]
     Dosage: UNK
     Route: 048
  6. BLOPRESS [Concomitant]
     Dosage: UNK
     Route: 048
  7. WARFARIN POTASSIUM [Concomitant]
     Dosage: UNK
     Route: 048
  8. NITROGLYCERIN [Concomitant]
     Dosage: UNK
  9. MAGNESIUM OXIDE [Concomitant]
     Dosage: UNK
     Route: 048

REACTIONS (3)
  - BLOOD POTASSIUM DECREASED [None]
  - BRADYCARDIA [None]
  - CARDIAC ARREST [None]
